FAERS Safety Report 5497158-2 (Version None)
Quarter: 2007Q4

REPORT INFORMATION
  Report Type: 
  Country: None (occurrence: None)
  Receive Date: 20071023
  Receipt Date: 20071015
  Transmission Date: 20080405
  Serious: Yes (Life-Threatening)
  Sender: FDA-Public Use
  Company Number: 2007AL004350

PATIENT
  Age: 43 Year
  Sex: Female

DRUGS (4)
  1. CITALOPRAM HYDROBROMIDE [Suspect]
     Dosage: 20 MG; QD; PO
     Route: 048
     Dates: start: 20071001
  2. AMOXICILLIN [Concomitant]
  3. LEVOTHYROXINE SODIUM [Concomitant]
  4. ESOMEPRAZOLE [Concomitant]

REACTIONS (3)
  - RASH [None]
  - THROAT TIGHTNESS [None]
  - WHEEZING [None]
